FAERS Safety Report 9121386 (Version 2)
Quarter: 2013Q2

REPORT INFORMATION
  Report Type: Report from Study
  Country: IT (occurrence: IT)
  Receive Date: 20130225
  Receipt Date: 20130415
  Transmission Date: 20140414
  Serious: Yes (Life-Threatening, Other)
  Sender: FDA-Public Use
  Company Number: IT-GENZYME-CLOF-1002517

PATIENT
  Age: 59 Year
  Sex: Male
  Weight: 88 kg

DRUGS (14)
  1. EVOLTRA [Suspect]
     Indication: ACUTE LYMPHOCYTIC LEUKAEMIA
     Dosage: 80 MG, QD
     Route: 042
     Dates: start: 20130114, end: 20130118
  2. CYCLOPHOSPHAMIDE [Suspect]
     Indication: ACUTE LYMPHOCYTIC LEUKAEMIA
     Dosage: 800 MG, QD
     Route: 042
     Dates: start: 20130114, end: 20130118
  3. PREDNISONE [Suspect]
     Indication: ACUTE LYMPHOCYTIC LEUKAEMIA
     Dosage: 80 MG, QD
     Route: 048
     Dates: start: 20130114, end: 20130118
  4. LEVOXACIN [Concomitant]
     Indication: PROPHYLAXIS
     Dosage: 500 MG, QD
     Route: 048
     Dates: start: 20130110, end: 20130121
  5. ACICLOVIR [Concomitant]
     Indication: PROPHYLAXIS
     Dosage: 800 MG, QD
     Route: 048
     Dates: start: 20130110
  6. VFEND [Concomitant]
     Indication: ASPERGILLUS INFECTION
     Dosage: 400 MG, QD
     Route: 048
     Dates: start: 20130106
  7. VFEND [Concomitant]
     Indication: ANTI-INFECTIVE THERAPY
  8. BARACLUDE [Concomitant]
     Indication: PROPHYLAXIS
     Dosage: 0.5 MG, QD
     Route: 048
     Dates: start: 20130106
  9. ENAPREN [Concomitant]
     Indication: HYPERTENSION
     Dosage: 5 MG, QD
     Route: 048
     Dates: start: 20130106
  10. HUMALOG [Concomitant]
     Indication: DIABETES MELLITUS
     Dosage: 60 U, QD
     Route: 058
     Dates: start: 20130114
  11. BACTRIM [Concomitant]
     Indication: PROPHYLAXIS
     Dosage: 160+800 MG /DAY
     Route: 048
     Dates: start: 20130110
  12. LANTUS [Concomitant]
     Indication: DIABETES MELLITUS
     Dosage: 20 U, QD
     Route: 058
     Dates: start: 20130114
  13. TARGOSID [Concomitant]
     Indication: THERAPEUTIC PROCEDURE
     Dosage: 800 MG, QD
     Route: 042
     Dates: start: 20130122
  14. NIVESTIM [Concomitant]
     Indication: NEUTROPENIA
     Dosage: 95000 U, QD
     Route: 058
     Dates: start: 20130120

REACTIONS (3)
  - Atrial fibrillation [Not Recovered/Not Resolved]
  - Pneumonitis [Recovered/Resolved]
  - Sinus tachycardia [Recovered/Resolved]
